FAERS Safety Report 6975182-8 (Version None)
Quarter: 2010Q3

REPORT INFORMATION
  Report Type: 
  Country: None (occurrence: None)
  Receive Date: 20100910
  Receipt Date: 20090216
  Transmission Date: 20110219
  Serious: Yes (Other)
  Sender: FDA-Public Use
  Company Number: US-WYE-H08204809

PATIENT
  Age: 49 Year
  Sex: Female
  Weight: 61.29 kg

DRUGS (5)
  1. PRISTIQ [Suspect]
     Indication: MAJOR DEPRESSION
     Route: 048
     Dates: start: 20090114, end: 20090117
  2. TOPAMAX [Concomitant]
  3. TRILEPTAL [Concomitant]
  4. KEPPRA [Concomitant]
  5. DEPAKOTE [Concomitant]

REACTIONS (13)
  - BLOOD PRESSURE ABNORMAL [None]
  - BRUXISM [None]
  - CHILLS [None]
  - CONVULSION [None]
  - EXCESSIVE SEXUAL FANTASIES [None]
  - FLATULENCE [None]
  - FREQUENT BOWEL MOVEMENTS [None]
  - HEADACHE [None]
  - HOT FLUSH [None]
  - INSOMNIA [None]
  - MIDDLE INSOMNIA [None]
  - NAUSEA [None]
  - UNEVALUABLE EVENT [None]
